FAERS Safety Report 9213010 (Version 1)
Quarter: 2013Q1

REPORT INFORMATION
  Report Type: Spontaneous
  Country: US (occurrence: None)
  Receive Date: 20120820
  Receipt Date: 20120820
  Transmission Date: 20140127
  Serious: No
  Sender: FDA-Public Use
  Company Number: 1000036673

PATIENT
  Age: 70 Year
  Sex: Female

DRUGS (18)
  1. VIIBRYD [Suspect]
     Indication: DEPRESSION
     Dosage: 10MG (10MG, 1 IN 1D) ORAL
     Route: 048
     Dates: start: 20120414, end: 20120420
  2. VIIBRYD [Suspect]
     Indication: DEPRESSION
     Dosage: 40MG (40MG, 1 N 1D) ORAL
     Route: 048
     Dates: start: 20120428, end: 20120430
  3. VIIBRYD [Suspect]
     Indication: DEPRESSION
     Dosage: 10MG (10MG, 1 IN 1 D) ORAL
     Route: 048
     Dates: start: 20120623
  4. IRBESARTAN (IRBESARTAN) (IRBESARTAN) [Concomitant]
  5. RANITIDINE (RANITIDINE) (RANITIDINE) [Concomitant]
  6. AMITRIPTYLINE (AMITRIPTYLINE) (AMITRIPTYLINE) [Concomitant]
  7. CO QQ-10 (CO Q-10) (CO Q-10) [Concomitant]
  8. PRAVASTATIN (PRAVASTATIN) (PRAVASTATIN) [Concomitant]
  9. MULTIVITAMINS (MULTIVITAMINS) (MULTIVITAMINS) [Concomitant]
  10. CALCIUM PLUS VITAMIN D (CALCIUM D3) (CALCIUM D3) [Concomitant]
  11. VITAMIN D (VITAMIN D) (VITAMIN D) [Concomitant]
  12. LORAZEPAM (LORAZEPAM) (LORAZEPAM) [Concomitant]
  13. COLACE (DOCUSATE SODIUM) (DOCUSATE SODIUM) [Concomitant]
  14. SYSTANE BALANCE EYE DROPS (SYSTANE BALANCE EYE DROPS) (SYSTANE BALANCE EYE DROPS) [Concomitant]
  15. THERA TEARS (CARMELLOSE) (CARMELLOSE) [Concomitant]
  16. CLOBETASOL (CLOBETASOL) (CLOBEETASOL) [Concomitant]
  17. FLUOCINONIDE (FLUOCINONIDE) (FLUOCINONIDE) [Concomitant]
  18. METAXALONE (METAXALONE) (METAXALONE) [Concomitant]

REACTIONS (7)
  - Dizziness [None]
  - Hyperhidrosis [None]
  - Dyspnoea [None]
  - Fear [None]
  - Pain in extremity [None]
  - Musculoskeletal pain [None]
  - Urinary tract infection [None]
